FAERS Safety Report 23409732 (Version 1)
Quarter: 2024Q1

REPORT INFORMATION
  Report Type: Spontaneous
  Country: US (occurrence: US)
  Receive Date: 20240117
  Receipt Date: 20240117
  Transmission Date: 20240410
  Serious: Yes (Other)
  Sender: FDA-Public Use
  Company Number: US-MYLANLABS-2024M1004139

PATIENT
  Age: 34 Year
  Sex: Female

DRUGS (8)
  1. TRIAMCINOLONE [Suspect]
     Active Substance: TRIAMCINOLONE
     Indication: Chondropathy
     Dosage: UNK
     Route: 061
  2. TRIAMCINOLONE [Suspect]
     Active Substance: TRIAMCINOLONE
     Indication: Dermatitis
  3. HYDROCORTISONE [Suspect]
     Active Substance: HYDROCORTISONE
     Indication: Chondropathy
     Dosage: UNK, OTIC SOLUTION
     Route: 001
  4. HYDROCORTISONE [Suspect]
     Active Substance: HYDROCORTISONE
     Indication: Dermatitis
  5. NEOMYCIN [Suspect]
     Active Substance: NEOMYCIN
     Indication: Chondropathy
     Dosage: UNK, EYE DROP
     Route: 065
  6. NEOMYCIN [Suspect]
     Active Substance: NEOMYCIN
     Indication: Dermatitis
  7. POLYMYXIN B SULFATE [Suspect]
     Active Substance: POLYMYXIN B SULFATE
     Indication: Chondropathy
     Dosage: UNK, EYE DROP
     Route: 065
  8. POLYMYXIN B SULFATE [Suspect]
     Active Substance: POLYMYXIN B SULFATE
     Indication: Dermatitis

REACTIONS (1)
  - Drug ineffective [Unknown]
